FAERS Safety Report 8570706-1 (Version None)
Quarter: 2012Q3

REPORT INFORMATION
  Report Type: 
  Country: None (occurrence: None)
  Receive Date: 20120805
  Receipt Date: 20120618
  Transmission Date: 20120928
  Serious: No
  Sender: FDA-Public Use
  Company Number: US-009507513-2012SP035922

PATIENT

DRUGS (3)
  1. CLARITIN [Suspect]
     Indication: SNEEZING
     Dosage: UNK UNK, UNKNOWN
     Route: 048
  2. CLARITIN [Suspect]
     Indication: HYPERSENSITIVITY
  3. CLARITIN [Suspect]
     Indication: LACRIMATION INCREASED

REACTIONS (1)
  - NO THERAPEUTIC RESPONSE [None]
